FAERS Safety Report 6666925-1 (Version None)
Quarter: 2010Q2

REPORT INFORMATION
  Report Type: 
  Country: None (occurrence: None)
  Receive Date: 20100405
  Receipt Date: 20100324
  Transmission Date: 20101027
  Serious: Yes (Hospitalization)
  Sender: FDA-Public Use
  Company Number: PHHY2010IT18442

PATIENT
  Sex: Female

DRUGS (1)
  1. VOLTAREN OFTA (NVO) [Suspect]
     Dosage: UNK
     Route: 061
     Dates: start: 20100124, end: 20100205

REACTIONS (2)
  - EYE PAIN [None]
  - EYELID OEDEMA [None]
